FAERS Safety Report 16619616 (Version 3)
Quarter: 2019Q3

REPORT INFORMATION
  Report Type: Report from Study
  Country: JP (occurrence: JP)
  Receive Date: 20190723
  Receipt Date: 20190809
  Transmission Date: 20191004
  Serious: Yes (Life-Threatening, Other)
  Sender: FDA-Public Use
  Company Number: JP-PFIZER INC-2019310377

PATIENT
  Age: 3 Year
  Sex: Female
  Weight: 13 kg

DRUGS (21)
  1. PONATINIB [Concomitant]
     Active Substance: PONATINIB
     Dosage: 10 MG, DAILY
  2. ICLUSIG [Suspect]
     Active Substance: PONATINIB
     Indication: ACUTE LYMPHOCYTIC LEUKAEMIA
     Dosage: 10 MG, DAILY
     Route: 048
     Dates: start: 20180413, end: 20180515
  3. ICLUSIG [Suspect]
     Active Substance: PONATINIB
     Dosage: 15 MG, DAILY
     Route: 048
     Dates: start: 20180516, end: 20180529
  4. LEUNASE [Concomitant]
     Active Substance: ASPARAGINASE
     Dosage: UNK
     Dates: start: 20171218
  5. IFOMIDE [Concomitant]
     Active Substance: IFOSFAMIDE
     Dosage: UNK
     Dates: start: 20180112, end: 20180116
  6. CYLOCIDE [Concomitant]
     Active Substance: CYTARABINE
     Dosage: UNK
     Dates: start: 20180131
  7. PONATINIB [Concomitant]
     Active Substance: PONATINIB
     Dosage: 5 MG, DAILY
  8. ICLUSIG [Suspect]
     Active Substance: PONATINIB
     Dosage: 5 MG, DAILY
     Route: 048
     Dates: start: 20180617
  9. ONCOVIN [Concomitant]
     Active Substance: VINCRISTINE SULFATE
     Dosage: UNK
     Dates: start: 20171211
  10. HYALEIN [Concomitant]
     Active Substance: HYALURONATE SODIUM
  11. DASATINIB MONOHYDRATE [Concomitant]
     Active Substance: DASATINIB
     Dosage: 60 MG, DAILY
     Dates: start: 20171215, end: 20180412
  12. PREDONINE [PREDNISOLONE ACETATE] [Concomitant]
     Active Substance: PREDNISOLONE ACETATE
     Dosage: UNK
     Dates: start: 20171209
  13. SEPAMIT [Concomitant]
     Active Substance: NIFEDIPINE
     Dosage: UNK
     Dates: start: 20180519, end: 20180613
  14. FML [Concomitant]
     Active Substance: FLUOROMETHOLONE
  15. DEXART [Suspect]
     Active Substance: DEXAMETHASONE SODIUM PHOSPHATE
     Indication: ACUTE LYMPHOCYTIC LEUKAEMIA
     Dosage: UNK
     Dates: start: 20171211
  16. DAUNOMYCIN [DAUNORUBICIN HYDROCHLORIDE] [Concomitant]
     Active Substance: DAUNORUBICIN HYDROCHLORIDE
     Dosage: UNK
     Dates: start: 20171211
  17. ROZEREM [Concomitant]
     Active Substance: RAMELTEON
     Dosage: UNK
     Dates: start: 20180514, end: 20180520
  18. ENDOXAN [CYCLOPHOSPHAMIDE MONOHYDRATE] [Concomitant]
     Active Substance: CYCLOPHOSPHAMIDE
     Dosage: UNK
     Dates: start: 20171213
  19. ETOPOSIDE. [Concomitant]
     Active Substance: ETOPOSIDE
     Dosage: UNK
     Dates: start: 20180112
  20. METHOTREXATE SODIUM. [Suspect]
     Active Substance: METHOTREXATE SODIUM
     Indication: ACUTE LYMPHOCYTIC LEUKAEMIA
     Dosage: UNK
     Dates: start: 20180130
  21. CANDESARTAN [CANDESARTAN CILEXETIL] [Concomitant]
     Active Substance: CANDESARTAN CILEXETIL

REACTIONS (6)
  - Hypertension [Recovering/Resolving]
  - Acute kidney injury [Recovered/Resolved]
  - Abdominal pain [Unknown]
  - Altered state of consciousness [Unknown]
  - Photophobia [Not Recovered/Not Resolved]
  - Diarrhoea [Recovering/Resolving]

NARRATIVE: CASE EVENT DATE: 20180313
